FAERS Safety Report 9408123 (Version 7)
Quarter: 2014Q2

REPORT INFORMATION
  Report Type: Spontaneous
  Country: US (occurrence: US)
  Receive Date: 20130718
  Receipt Date: 20140422
  Transmission Date: 20141212
  Serious: Yes (Hospitalization, Disabling, Other)
  Sender: FDA-Public Use
  Company Number: US-009507513-1307USA009172

PATIENT
  Sex: Female
  Weight: 90.7 kg

DRUGS (8)
  1. FOSAMAX [Suspect]
     Indication: OSTEOPOROSIS
     Dosage: UNK
     Route: 048
     Dates: start: 200005
  2. FOSAMAX [Suspect]
     Dosage: 10 MG, UNK
     Route: 048
     Dates: start: 199904, end: 200312
  3. FOSAMAX [Suspect]
     Dosage: 70 MG, UNK
     Route: 048
     Dates: start: 200401
  4. FOSAMAX [Suspect]
     Dosage: 70 MG, UNK
     Route: 048
     Dates: start: 200404, end: 200501
  5. FOSAMAX [Suspect]
     Dosage: 70 MG, UNK
     Route: 048
     Dates: start: 200504, end: 200612
  6. FOSAMAX [Suspect]
     Dosage: 70 MG, QW
     Route: 048
     Dates: start: 20081014, end: 20101019
  7. ALENDRONATE SODIUM [Suspect]
     Indication: PROPHYLAXIS
     Dosage: 70 MG, UNK
     Route: 048
     Dates: start: 200810, end: 200903
  8. ALENDRONATE SODIUM [Suspect]
     Dosage: 70 MG, UNK
     Route: 048
     Dates: start: 200904

REACTIONS (26)
  - Femur fracture [Recovered/Resolved]
  - Hip arthroplasty [Unknown]
  - Hip fracture [Recovered/Resolved]
  - Appendicitis [Unknown]
  - Hip arthroplasty [Unknown]
  - Femur fracture [Unknown]
  - Hip arthroplasty [Unknown]
  - Head injury [Unknown]
  - Joint injury [Unknown]
  - Cholecystectomy [Unknown]
  - Hip arthroplasty [Unknown]
  - Developmental hip dysplasia [Unknown]
  - Foot fracture [Unknown]
  - Varicose vein [Unknown]
  - Vascular operation [Unknown]
  - Osteopenia [Unknown]
  - Osteoarthritis [Unknown]
  - Perineurial cyst [Unknown]
  - Abdominal hernia [Unknown]
  - Blood cholesterol increased [Unknown]
  - Adenotonsillectomy [Unknown]
  - Phlebitis [Unknown]
  - Fibrocystic breast disease [Unknown]
  - Vitamin D deficiency [Unknown]
  - Spinal osteoarthritis [Unknown]
  - Pain in extremity [Unknown]
